FAERS Safety Report 15768260 (Version 3)
Quarter: 2019Q1

REPORT INFORMATION
  Report Type: Spontaneous
  Country: US (occurrence: US)
  Receive Date: 20181227
  Receipt Date: 20190130
  Transmission Date: 20190417
  Serious: Yes (Other)
  Sender: FDA-Public Use
  Company Number: US-BIOMARINAP-US-2018-121292

PATIENT
  Age: 7 Year
  Sex: Female

DRUGS (3)
  1. ALDURAZYME [Suspect]
     Active Substance: LARONIDASE
     Dosage: UNK
     Route: 041
     Dates: start: 20180815
  2. ALDURAZYME [Suspect]
     Active Substance: LARONIDASE
     Indication: MUCOPOLYSACCHARIDOSIS I
     Dosage: UNK
     Route: 041
     Dates: start: 20160817
  3. ALDURAZYME [Suspect]
     Active Substance: LARONIDASE
     Dosage: UNK
     Route: 041
     Dates: start: 20170817

REACTIONS (10)
  - Hepatosplenomegaly [Unknown]
  - Arthropathy [Unknown]
  - Pyrexia [Unknown]
  - Musculoskeletal stiffness [Unknown]
  - Urinary glycosaminoglycans increased [Unknown]
  - Antibody test positive [Unknown]
  - Drug specific antibody present [Unknown]
  - Unevaluable event [Unknown]
  - Neutralising antibodies [Unknown]
  - Corneal opacity [Unknown]

NARRATIVE: CASE EVENT DATE: 201708
